FAERS Safety Report 6819256-0 (Version None)
Quarter: 2010Q2

REPORT INFORMATION
  Report Type: 
  Country: None (occurrence: None)
  Receive Date: 20100630
  Receipt Date: 20100616
  Transmission Date: 20101027
  Serious: Yes (Hospitalization)
  Sender: FDA-Public Use
  Company Number: 2010002571

PATIENT
  Age: 55 Year
  Sex: Female

DRUGS (17)
  1. ERLOTINIB (ERLOTINIB) (TABLET) (ERLOTINIB) [Suspect]
     Indication: NON-SMALL CELL LUNG CANCER
     Dosage: 150 MG, QD) ORAL
     Route: 048
  2. ACETAMINOPHEN [Concomitant]
  3. CIPROFLOXACIN [Concomitant]
  4. DEXTROSE 5% [Concomitant]
  5. ENOXAPARIN SODIUM [Concomitant]
  6. INSULIN HUMAN (INSULIN HUMAN) [Concomitant]
  7. IPRATROPIUM BROMIDE [Concomitant]
  8. LEVALBUTEROL HYDROCHLORIDE [Concomitant]
  9. MAGNESIUM SULFATE [Concomitant]
  10. METHYLPREDNISOLONE [Concomitant]
  11. MORPHINE [Concomitant]
  12. ONDANSETRON HYDROCHLORIDE [Concomitant]
  13. PIPERACILLIN [Concomitant]
  14. POTASSIUM CHLORIDE [Concomitant]
  15. SODIUM CHLORIDE 0.9% [Concomitant]
  16. SODIUM PHOSPHATE [Concomitant]
  17. VANCOMYCIN HYDROCHLORIDE [Concomitant]

REACTIONS (4)
  - CHRONIC OBSTRUCTIVE PULMONARY DISEASE [None]
  - CONDITION AGGRAVATED [None]
  - HYPOXIA [None]
  - PNEUMONIA [None]
